FAERS Safety Report 6011413-9 (Version None)
Quarter: 2008Q4

REPORT INFORMATION
  Report Type: 
  Country: None (occurrence: None)
  Receive Date: 20081218
  Receipt Date: 19990902
  Transmission Date: 20090506
  Serious: Yes (Death, Hospitalization, Other)
  Sender: FDA-Public Use
  Company Number: US-ROCHE-213620

PATIENT
  Age: 55 Year
  Sex: Female
  Weight: 77.1 kg

DRUGS (5)
  1. XELODA [Suspect]
     Indication: BREAST CANCER
     Dosage: 2 WEEKS TREATMENT, 1 WEEK REST
     Route: 048
     Dates: start: 19990624, end: 19990809
  2. VITAMIN E [Concomitant]
     Indication: NUTRITIONAL SUPPORT
     Route: 048
  3. ASPIRIN [Concomitant]
     Route: 048
  4. PRAVACHOL [Concomitant]
     Route: 048
  5. RADIOTHERAPY MIXTURE [Concomitant]

REACTIONS (14)
  - ASCITES [None]
  - DEATH [None]
  - DIARRHOEA [None]
  - FLUID OVERLOAD [None]
  - FUNGUS URINE TEST POSITIVE [None]
  - HYPERGLYCAEMIA [None]
  - HYPOTENSION [None]
  - METASTATIC NEOPLASM [None]
  - NAUSEA [None]
  - OEDEMA [None]
  - POLLAKIURIA [None]
  - SEPSIS [None]
  - TACHYPNOEA [None]
  - VOMITING [None]
